FAERS Safety Report 25624456 (Version 1)
Quarter: 2025Q3

REPORT INFORMATION
  Report Type: Spontaneous
  Country: GB (occurrence: GB)
  Receive Date: 20250730
  Receipt Date: 20250730
  Transmission Date: 20251020
  Serious: Yes (Life-Threatening, Hospitalization, Disabling, Other)
  Sender: ELI LILLY AND COMPANY
  Company Number: None

PATIENT
  Age: 66 Year
  Sex: Female
  Weight: 95 kg

DRUGS (1)
  1. MOUNJARO [Suspect]
     Active Substance: TIRZEPATIDE
     Indication: Product used for unknown indication
     Route: 065
     Dates: start: 20250428

REACTIONS (5)
  - Sepsis [Recovered/Resolved with Sequelae]
  - Inflammatory bowel disease [Recovered/Resolved with Sequelae]
  - Loss of consciousness [Unknown]
  - Chromaturia [Unknown]
  - Dehydration [Unknown]

NARRATIVE: CASE EVENT DATE: 20250501
